FAERS Safety Report 13491984 (Version 2)
Quarter: 2017Q2

REPORT INFORMATION
  Report Type: Spontaneous
  Country: FI (occurrence: FI)
  Receive Date: 20170427
  Receipt Date: 20170518
  Transmission Date: 20170830
  Serious: Yes (Life-Threatening)
  Sender: FDA-Public Use
  Company Number: FI-GUERBET-FI-20170007

PATIENT
  Age: 38 Year
  Sex: Female

DRUGS (3)
  1. MANNITOL. [Concomitant]
     Active Substance: MANNITOL
     Indication: BOWEL PREPARATION
     Route: 048
     Dates: start: 20170413, end: 20170413
  2. BUSCOPAN [Concomitant]
     Active Substance: BUTYLSCOPOLAMINE BROMIDE
     Indication: BOWEL PREPARATION
     Route: 042
     Dates: start: 20170413, end: 20170413
  3. DOTAREM [Suspect]
     Active Substance: GADOTERATE MEGLUMINE
     Indication: NUCLEAR MAGNETIC RESONANCE IMAGING
     Route: 042
     Dates: start: 20170413, end: 20170413

REACTIONS (2)
  - Urticaria [Unknown]
  - Dyspnoea [Unknown]

NARRATIVE: CASE EVENT DATE: 20170413
